FAERS Safety Report 23605466 (Version 1)
Quarter: 2024Q1

REPORT INFORMATION
  Report Type: Other
  Country: US (occurrence: None)
  Receive Date: 20240307
  Receipt Date: 20240307
  Transmission Date: 20240409
  Serious: Yes (Hospitalization, Other)
  Sender: FDA-Public Use
  Company Number: US-ROCHE-3033332

PATIENT
  Age: 3 Year
  Sex: Female
  Weight: 11.7 kg

DRUGS (13)
  1. EVRYSDI [Suspect]
     Active Substance: RISDIPLAM
     Indication: Spinal muscular atrophy
     Dosage: DATE OF TREATMENT: 26/AUG/2021
     Route: 048
     Dates: start: 20210720
  2. EVRYSDI [Suspect]
     Active Substance: RISDIPLAM
     Route: 048
  3. ORAPRED [Concomitant]
     Active Substance: PREDNISOLONE SODIUM PHOSPHATE
     Route: 048
  4. ATROVENT [Concomitant]
     Active Substance: IPRATROPIUM BROMIDE
     Indication: Wheezing
     Route: 055
  5. FLOVENT HFA [Concomitant]
     Active Substance: FLUTICASONE PROPIONATE
     Dosage: 2 PUFFS
     Route: 055
  6. DECADRON [Concomitant]
     Active Substance: DEXAMETHASONE
     Dosage: 1 TABLET
     Route: 048
  7. SODIUM CHLORIDE [Concomitant]
     Active Substance: SODIUM CHLORIDE
     Route: 055
  8. SYNAGIS [Concomitant]
     Active Substance: PALIVIZUMAB
     Route: 030
  9. BACTROBAN [Concomitant]
     Active Substance: MUPIROCIN CALCIUM
     Route: 061
  10. HYDROCORTISONE [Concomitant]
     Active Substance: HYDROCORTISONE
     Route: 061
  11. CIPRODEX [Concomitant]
     Active Substance: CIPROFLOXACIN HYDROCHLORIDE\DEXAMETHASONE
  12. PROVENTIL HFA [Concomitant]
     Active Substance: ALBUTEROL SULFATE
     Route: 055
  13. MYCOSTATIN [Concomitant]
     Active Substance: NYSTATIN

REACTIONS (9)
  - Pneumonia aspiration [Recovered/Resolved]
  - Ear infection [Recovered/Resolved]
  - Pharyngitis streptococcal [Recovered/Resolved]
  - Rhinovirus infection [Recovered/Resolved]
  - Enterovirus infection [Recovered/Resolved]
  - Respiratory tract infection bacterial [Recovered/Resolved]
  - Gastrointestinal bacterial overgrowth [Recovered/Resolved]
  - Diarrhoea [Unknown]
  - Pharyngitis streptococcal [Unknown]

NARRATIVE: CASE EVENT DATE: 20220210
